FAERS Safety Report 16943867 (Version 1)
Quarter: 2019Q4

REPORT INFORMATION
  Report Type: Spontaneous
  Country: CA (occurrence: CA)
  Receive Date: 20191022
  Receipt Date: 20191022
  Transmission Date: 20200122
  Serious: Yes (Other)
  Sender: FDA-Public Use
  Company Number: CA-TEVA-2019-CA-1124507

PATIENT
  Age: 23 Year
  Sex: Male
  Weight: 93 kg

DRUGS (13)
  1. TRAZODONE [Suspect]
     Active Substance: TRAZODONE HYDROCHLORIDE
     Indication: SCHIZOPHRENIA
     Dosage: 275 MILLIGRAM DAILY;
     Route: 048
  2. DOXYCYCLINE. [Concomitant]
     Active Substance: DOXYCYCLINE
     Dosage: 100 MILLIGRAM DAILY;
     Route: 048
  3. FLUOROMETHOLONE OPHTHALMIC [Concomitant]
     Route: 047
  4. HALOPERIDOL. [Concomitant]
     Active Substance: HALOPERIDOL
  5. PROPRANOLOL [Concomitant]
     Active Substance: PROPRANOLOL HYDROCHLORIDE
     Route: 048
  6. TRAZODONE [Suspect]
     Active Substance: TRAZODONE HYDROCHLORIDE
     Indication: DEPRESSION
  7. TRAZODONE [Concomitant]
     Active Substance: TRAZODONE HYDROCHLORIDE
     Dosage: 275 MILLIGRAM DAILY;
     Route: 048
  8. RISPERIDONE. [Suspect]
     Active Substance: RISPERIDONE
     Indication: SCHIZOPHRENIA
     Dosage: 3.5 MILLIGRAM DAILY;
     Route: 048
  9. RISPERDAL [Concomitant]
     Active Substance: RISPERIDONE
     Dosage: 3.5 MILLIGRAM DAILY;
     Route: 048
  10. COGENTIN [Concomitant]
     Active Substance: BENZTROPINE MESYLATE
     Dosage: 2 MILLIGRAM DAILY;
  11. ABILIFY [Concomitant]
     Active Substance: ARIPIPRAZOLE
     Route: 048
  12. ATIVAN [Concomitant]
     Active Substance: LORAZEPAM
     Dosage: 8 MILLIGRAM DAILY;
     Route: 048
  13. SEROQUEL [Concomitant]
     Active Substance: QUETIAPINE FUMARATE
     Dosage: 300 MILLIGRAM DAILY;
     Route: 048

REACTIONS (13)
  - Anhedonia [Unknown]
  - Hallucination, auditory [Unknown]
  - Product substitution issue [Unknown]
  - Schizophrenia [Unknown]
  - Depressed mood [Unknown]
  - Emotional distress [Unknown]
  - Poor quality sleep [Unknown]
  - Reaction to excipient [Unknown]
  - Apathy [Unknown]
  - Tearfulness [Unknown]
  - Affective disorder [Unknown]
  - Impaired self-care [Unknown]
  - Therapeutic product effect decreased [Unknown]
